FAERS Safety Report 14382601 (Version 3)
Quarter: 2018Q3

REPORT INFORMATION
  Report Type: Spontaneous
  Country: DE (occurrence: DE)
  Receive Date: 20180112
  Receipt Date: 20180719
  Transmission Date: 20181010
  Serious: Yes (Hospitalization)
  Sender: FDA-Public Use
  Company Number: DE-TEVA-2018-DE-843983

PATIENT
  Age: 65 Year
  Sex: Male
  Weight: 78 kg

DRUGS (6)
  1. DEXAMETHASONE. [Suspect]
     Active Substance: DEXAMETHASONE
     Indication: PRODUCT USED FOR UNKNOWN INDICATION
     Dosage: LAST DOSE PRIOR TO SAE: 19?APR?2015
     Dates: start: 20150208
  2. TEMSIROLIMUS [Suspect]
     Active Substance: TEMSIROLIMUS
     Dosage: 25 MG
     Route: 065
     Dates: start: 20150206
  3. CYTARABINE. [Suspect]
     Active Substance: CYTARABINE
     Indication: PRODUCT USED FOR UNKNOWN INDICATION
     Dosage: 8000 MILLIGRAM DAILY; LAST DOSE PRIOR TO SAE: 17?APR?2015
     Route: 065
     Dates: start: 20150209
  4. TEMSIROLIMUS [Suspect]
     Active Substance: TEMSIROLIMUS
     Indication: PRODUCT USED FOR UNKNOWN INDICATION
     Dosage: DAY 1, DAY 8
     Route: 065
     Dates: start: 20150206
  5. RITUXIMAB. [Suspect]
     Active Substance: RITUXIMAB
     Indication: PRODUCT USED FOR UNKNOWN INDICATION
     Dosage: LAST DOSE PRIOR TO SAE: 15?APR?2015
     Route: 065
     Dates: start: 20150207
  6. CISPLATIN. [Suspect]
     Active Substance: CISPLATIN
     Indication: PRODUCT USED FOR UNKNOWN INDICATION
     Dosage: 200 MG
     Route: 065
     Dates: start: 20150208

REACTIONS (1)
  - Renal failure [Not Recovered/Not Resolved]

NARRATIVE: CASE EVENT DATE: 20150419
